FAERS Safety Report 6410428-6 (Version None)
Quarter: 2009Q4

REPORT INFORMATION
  Report Type: 
  Country: None (occurrence: None)
  Receive Date: 20091022
  Receipt Date: 20091014
  Transmission Date: 20100525
  Serious: Yes (Other)
  Sender: FDA-Public Use
  Company Number: US-GENENTECH-291417

PATIENT

DRUGS (1)
  1. RITUXIMAB [Suspect]
     Indication: LYMPHOMA

REACTIONS (1)
  - HEPATITIS B [None]
